FAERS Safety Report 19489025 (Version 3)
Quarter: 2021Q4

REPORT INFORMATION
  Report Type: Spontaneous
  Country: HR (occurrence: HR)
  Receive Date: 20210703
  Receipt Date: 20211215
  Transmission Date: 20220304
  Serious: Yes (Other)
  Sender: FDA-Public Use
  Company Number: HR-BRISTOL-MYERS SQUIBB COMPANY-BMS-2021-063168

PATIENT
  Age: 74 Year
  Sex: Male

DRUGS (3)
  1. NIVOLUMAB [Suspect]
     Active Substance: NIVOLUMAB
     Indication: Metastatic renal cell carcinoma
     Dosage: UNK
     Route: 042
     Dates: start: 20181128, end: 20190320
  2. NIVOLUMAB [Suspect]
     Active Substance: NIVOLUMAB
     Dosage: 240 MILLIGRAM
     Route: 065
     Dates: start: 201905
  3. IPILIMUMAB [Suspect]
     Active Substance: IPILIMUMAB
     Indication: Metastatic renal cell carcinoma
     Dosage: UNK
     Route: 042
     Dates: start: 20181128, end: 20190320

REACTIONS (7)
  - Immune-mediated hepatitis [Unknown]
  - Immune-mediated arthritis [Unknown]
  - Immune-mediated enterocolitis [Unknown]
  - Diabetes mellitus [Unknown]
  - Immune-mediated hypophysitis [Unknown]
  - Immune-mediated dermatitis [Unknown]
  - Nephropathy toxic [Unknown]
